FAERS Safety Report 18441421 (Version 2)
Quarter: 2020Q4

REPORT INFORMATION
  Report Type: Spontaneous
  Country: HR (occurrence: HR)
  Receive Date: 20201029
  Receipt Date: 20201125
  Transmission Date: 20210114
  Serious: Yes (Other)
  Sender: FDA-Public Use
  Company Number: HR-PFIZER INC-2020414521

PATIENT
  Age: 59 Year
  Sex: Male

DRUGS (4)
  1. ATORVASTATIN CALCIUM. [Suspect]
     Active Substance: ATORVASTATIN CALCIUM
     Dosage: 20 MG
  2. APIXABAN [Suspect]
     Active Substance: APIXABAN
     Dosage: 5 MG, 2X/DAY
  3. PROPAFENON [PROPAFENONE HYDROCHLORIDE] [Suspect]
     Active Substance: PROPAFENONE HYDROCHLORIDE
     Dosage: 150 MG,  2-3XDAY
  4. PERINDOPRIL [Suspect]
     Active Substance: PERINDOPRIL
     Dosage: 8 MG

REACTIONS (5)
  - Carotid artery stenosis [Unknown]
  - Supraventricular extrasystoles [Unknown]
  - Fatigue [Unknown]
  - Left atrial enlargement [Unknown]
  - Heart rate increased [Unknown]

NARRATIVE: CASE EVENT DATE: 2020
